FAERS Safety Report 17578142 (Version 1)
Quarter: 2020Q1

REPORT INFORMATION
  Report Type: Spontaneous
  Country: US (occurrence: US)
  Receive Date: 20200320
  Receipt Date: 20200320
  Transmission Date: 20200409
  Serious: No
  Sender: FDA-Public Use
  Company Number: None

PATIENT
  Age: 39 Year
  Sex: Female

DRUGS (1)
  1. OCTREOTIDE 200MCG/ML MDV 5ML [Suspect]
     Active Substance: OCTREOTIDE
     Route: 058
     Dates: start: 201901

REACTIONS (3)
  - Migraine [None]
  - Therapy cessation [None]
  - Brain oedema [None]

NARRATIVE: CASE EVENT DATE: 20200320
